FAERS Safety Report 13185021 (Version 1)
Quarter: 2017Q1

REPORT INFORMATION
  Report Type: Spontaneous
  Country: US (occurrence: US)
  Receive Date: 20170203
  Receipt Date: 20170203
  Transmission Date: 20170428
  Serious: No
  Sender: FDA-Public Use
  Company Number: US-ASTRAZENECA-2017SE07890

PATIENT
  Age: 59 Year
  Sex: Female
  Weight: 62.6 kg

DRUGS (5)
  1. LISINOPRIL. [Suspect]
     Active Substance: LISINOPRIL
     Indication: DIABETIC NEUROPATHY
     Route: 048
  2. LISINOPRIL. [Suspect]
     Active Substance: LISINOPRIL
     Indication: NEPHROTIC SYNDROME
     Route: 048
  3. INVOKANA [Suspect]
     Active Substance: CANAGLIFLOZIN
     Dosage: HALF OF 300MG ONCE DAILY
     Route: 048
  4. FARXIGA [Suspect]
     Active Substance: DAPAGLIFLOZIN PROPANEDIOL
     Route: 048
  5. INVOKANA [Suspect]
     Active Substance: CANAGLIFLOZIN
     Route: 048

REACTIONS (5)
  - Proteinuria [Unknown]
  - Off label use [Unknown]
  - Incorrect dose administered [Unknown]
  - Weight increased [Unknown]
  - Wrong technique in product usage process [Unknown]
